FAERS Safety Report 23385259 (Version 2)
Quarter: 2024Q2

REPORT INFORMATION
  Report Type: Report from Study
  Country: US (occurrence: US)
  Receive Date: 20240110
  Receipt Date: 20240429
  Transmission Date: 20240716
  Serious: No
  Sender: FDA-Public Use
  Company Number: US-AstraZeneca-CH-00540407A

PATIENT
  Sex: Male

DRUGS (2)
  1. SOLIRIS [Suspect]
     Active Substance: ECULIZUMAB
     Indication: Myasthenia gravis
     Dosage: UNK UNK, Q2W
     Route: 042
  2. IMMUNGLOBULIN [Concomitant]
     Indication: Product used for unknown indication
     Dosage: UNK, QMONTH
     Route: 042

REACTIONS (1)
  - Asthenia [Unknown]
